FAERS Safety Report 19947135 (Version 2)
Quarter: 2021Q4

REPORT INFORMATION
  Report Type: Other
  Country: PE (occurrence: None)
  Receive Date: 20211012
  Receipt Date: 20211101
  Transmission Date: 20220304
  Serious: Yes (Other)
  Sender: FDA-Public Use
  Company Number: PE-ROCHE-2931693

PATIENT

DRUGS (2)
  1. TOCILIZUMAB [Suspect]
     Active Substance: TOCILIZUMAB
     Indication: Acute respiratory distress syndrome
     Route: 065
  2. TOCILIZUMAB [Suspect]
     Active Substance: TOCILIZUMAB
     Indication: COVID-19

REACTIONS (5)
  - Hepatotoxicity [Unknown]
  - Liver injury [Unknown]
  - Superinfection bacterial [Unknown]
  - Acinetobacter infection [Unknown]
  - Off label use [Unknown]
